FAERS Safety Report 12616640 (Version 3)
Quarter: 2020Q2

REPORT INFORMATION
  Report Type: Spontaneous
  Country: US (occurrence: US)
  Receive Date: 20160802
  Receipt Date: 20200624
  Transmission Date: 20200713
  Serious: Yes (Life-Threatening)
  Sender: FDA-Public Use
  Company Number: US-BAUSCH-BL-2016-018283

PATIENT
  Age: 8 Week
  Sex: Female
  Weight: 3.15 kg

DRUGS (11)
  1. BRIMONIDINE [Suspect]
     Active Substance: BRIMONIDINE TARTRATE
     Dosage: FOUR HOURS LATER (APPLIED IN THE SAME AMOUNT), WITH TWO DROPS OF EACH AGENT
     Route: 047
  2. PROPRANOLOL [Concomitant]
     Active Substance: PROPRANOLOL HYDROCHLORIDE
     Dosage: TITRATED
     Route: 048
  3. PROPRANOLOL [Concomitant]
     Active Substance: PROPRANOLOL HYDROCHLORIDE
     Dosage: DIVIDED INTO THREE DAILY DOSES
     Route: 048
  4. PREDNISOLONE. [Concomitant]
     Active Substance: PREDNISOLONE
     Indication: INFANTILE HAEMANGIOMA
     Route: 048
  5. PREDNISOLONE. [Concomitant]
     Active Substance: PREDNISOLONE
     Dosage: INCREASED
     Route: 048
  6. BRIMONIDINE [Suspect]
     Active Substance: BRIMONIDINE TARTRATE
     Indication: INFANTILE HAEMANGIOMA
     Dosage: MORNING AFTER ADMISSION, WITH TWO DROPS OF EACH AGENT APPLIED OVER TWO ULCERATED AREAS OF THE IH
     Route: 047
  7. TIMOLOL. [Concomitant]
     Active Substance: TIMOLOL
     Indication: INFANTILE HAEMANGIOMA
     Dosage: MORNING AFTER ADMISSION, WITH TWO DROPS OF EACH AGENT APPLIED OVER TWO ULCERATED AREAS OF THE IH
     Route: 047
  8. TIMOLOL. [Concomitant]
     Active Substance: TIMOLOL
     Dosage: FOUR HOURS LATER, AGAIN APPLIED IN THE SAME AMOUNT, WITH TWO DROPS OF EACH AGENT
     Route: 047
  9. LIDOCAINE. [Concomitant]
     Active Substance: LIDOCAINE
     Indication: INFANTILE HAEMANGIOMA
     Route: 061
  10. PROPRANOLOL [Concomitant]
     Active Substance: PROPRANOLOL HYDROCHLORIDE
     Indication: INFANTILE HAEMANGIOMA
     Route: 048
  11. OXYCODONE [Concomitant]
     Active Substance: OXYCODONE
     Indication: PRODUCT USED FOR UNKNOWN INDICATION
     Route: 048

REACTIONS (7)
  - Toxicity to various agents [Recovered/Resolved]
  - Lethargy [Recovered/Resolved]
  - Apnoea [Recovered/Resolved]
  - Hypotonia [Recovered/Resolved]
  - Depressed level of consciousness [Recovered/Resolved]
  - Respiratory depression [Recovered/Resolved]
  - Hypothermia [Recovered/Resolved]
